FAERS Safety Report 10075493 (Version 2)
Quarter: 2020Q3

REPORT INFORMATION
  Report Type: Report from Study
  Country: AU (occurrence: AU)
  Receive Date: 20140414
  Receipt Date: 20140414
  Transmission Date: 20201105
  Serious: Yes (Other)
  Sender: FDA-Public Use
  Company Number: AU-JNJFOC-20130606643

PATIENT
  Age: 29 Year
  Sex: Female

DRUGS (9)
  1. REMICADE [Suspect]
     Active Substance: INFLIXIMAB
     Indication: EXPOSURE VIA BODY FLUID
     Route: 042
  2. LIDOCAINE. [Suspect]
     Active Substance: LIDOCAINE
     Indication: EPIDURAL ANAESTHESIA
     Dosage: FREQUENCY REPORTED AS ONCE
     Route: 023
     Dates: start: 20140123, end: 20140123
  3. SYNTOCINON [Suspect]
     Active Substance: OXYTOCIN
     Indication: HAEMORRHAGE PROPHYLAXIS
     Dosage: 4HOURS
     Route: 042
     Dates: start: 20140123
  4. ELEVIT [Concomitant]
     Active Substance: FOLIC ACID\IRON\MINERALS\VITAMINS
     Indication: VITAMIN SUPPLEMENTATION
     Dosage: EXPOSURE AT 40 GESTATIONAL WEEKS
     Route: 048
     Dates: start: 2012
  5. EPHEDRINE. [Suspect]
     Active Substance: EPHEDRINE
     Indication: BLOOD PRESSURE MEASUREMENT
     Dosage: FREQUENCY REPORTED AS ONCE
     Route: 042
     Dates: start: 20140123, end: 20140123
  6. CHOLECALCIFEROL [Concomitant]
     Active Substance: CHOLECALCIFEROL
     Indication: VITAMIN D DEFICIENCY
     Dosage: 3 TO 5 CAPSULES
     Route: 048
     Dates: start: 20130701, end: 201402
  7. MORPHINE [Suspect]
     Active Substance: MORPHINE
     Indication: ANALGESIC THERAPY
     Dosage: FREQUENCY ONCE,??PAIN RELIEF FOR CESAREAN SECTION
     Route: 037
     Dates: start: 20140123, end: 20140123
  8. PETHIDINE [Suspect]
     Active Substance: MEPERIDINE
     Indication: PROCEDURAL PAIN
     Dosage: FREQUENCY REPORTED AS 15 MINUTES
     Route: 008
     Dates: start: 20140123, end: 20140124
  9. CEFAZOLIN [Suspect]
     Active Substance: CEFAZOLIN
     Indication: PREMEDICATION
     Dosage: FREQUENCY REPORTED AS ONCE
     Route: 042
     Dates: start: 20140123, end: 20140123

REACTIONS (2)
  - Exposure during pregnancy [Recovered/Resolved]
  - Caesarean section [Unknown]

NARRATIVE: CASE EVENT DATE: 20140123
